FAERS Safety Report 15500912 (Version 2)
Quarter: 2018Q4

REPORT INFORMATION
  Report Type: Spontaneous
  Country: US (occurrence: US)
  Receive Date: 20181015
  Receipt Date: 20181025
  Transmission Date: 20190205
  Serious: Yes (Other)
  Sender: FDA-Public Use
  Company Number: US-IMPAX LABORATORIES, INC-2018-IPXL-03282

PATIENT
  Age: 82 Year
  Sex: Female

DRUGS (2)
  1. RYTARY [Suspect]
     Active Substance: CARBIDOPA\LEVODOPA
     Indication: PARKINSON^S DISEASE
     Dosage: 48.75/195MG, ONE CAPSULE, THREE TIMES A DAY
     Route: 065
  2. RYTARY [Suspect]
     Active Substance: CARBIDOPA\LEVODOPA
     Dosage: 23.75/95 MG, ONE CAPSULE, THREE TIMES A DAY
     Route: 065

REACTIONS (8)
  - Malaise [Unknown]
  - Cellulitis [Unknown]
  - Dry mouth [Unknown]
  - Road traffic accident [Unknown]
  - Pain [Unknown]
  - Feeling drunk [Unknown]
  - Feeling abnormal [Unknown]
  - Fall [Unknown]

NARRATIVE: CASE EVENT DATE: 201808
